FAERS Safety Report 8953394 (Version 3)
Quarter: 2013Q1

REPORT INFORMATION
  Report Type: Spontaneous
  Country: ZA (occurrence: ZA)
  Receive Date: 20121206
  Receipt Date: 20130314
  Transmission Date: 20140127
  Serious: Yes (Hospitalization)
  Sender: FDA-Public Use
  Company Number: ZA-ELI_LILLY_AND_COMPANY-ZA201211008786

PATIENT
  Age: 43 Year
  Sex: Male

DRUGS (6)
  1. HUMALOG 25% LISPRO, 75% NPL [Suspect]
     Indication: DIABETES MELLITUS
     Dosage: UNK
     Dates: start: 201202
  2. HUMALOG 50% LISPRO, 50% NPL [Suspect]
     Indication: DIABETES MELLITUS
     Dosage: 30 U, BID
     Route: 058
     Dates: start: 201210
  3. METFORMIN [Concomitant]
     Indication: DIABETES MELLITUS
     Dosage: 850 MG, BID
     Route: 048
  4. DISPRIN [Concomitant]
     Indication: ANTICOAGULANT THERAPY
     Dosage: UNK, QD
     Route: 048
  5. SIMVASTATIN [Concomitant]
     Indication: HYPERCHOLESTEROLAEMIA
     Dosage: UNK, QD
     Route: 048
  6. ANTIHYPERTENSIVES [Concomitant]
     Dosage: UNK
     Route: 048

REACTIONS (1)
  - Spinal fusion surgery [Recovered/Resolved]
